FAERS Safety Report 5928356-9 (Version None)
Quarter: 2008Q4

REPORT INFORMATION
  Report Type: 
  Country: None (occurrence: None)
  Receive Date: 20081023
  Receipt Date: 20081021
  Transmission Date: 20090506
  Serious: Yes (Death, Other)
  Sender: FDA-Public Use
  Company Number: US-BRISTOL-MYERS SQUIBB COMPANY-14377311

PATIENT
  Age: 53 Year
  Sex: Male
  Weight: 117 kg

DRUGS (1)
  1. ORENCIA [Suspect]
     Indication: RHEUMATOID ARTHRITIS
     Dates: start: 20081013

REACTIONS (4)
  - DYSPNOEA [None]
  - HEADACHE [None]
  - NAUSEA [None]
  - THROAT TIGHTNESS [None]
